FAERS Safety Report 6013622-1 (Version None)
Quarter: 2008Q4

REPORT INFORMATION
  Report Type: 
  Country: None (occurrence: None)
  Receive Date: 20081219
  Receipt Date: 20081212
  Transmission Date: 20090506
  Serious: Yes (Hospitalization, Other)
  Sender: FDA-Public Use
  Company Number: US-BRISTOL-MYERS SQUIBB COMPANY-14401939

PATIENT
  Age: 55 Year
  Sex: Male
  Weight: 92 kg

DRUGS (8)
  1. CT-322 [Suspect]
     Indication: GLIOBLASTOMA MULTIFORME
     Route: 042
     Dates: start: 20080228
  2. TRAZODONE HCL [Suspect]
     Indication: INSOMNIA
     Route: 048
     Dates: start: 20081104, end: 20081106
  3. LISINOPRIL [Concomitant]
     Indication: HYPERTENSION
     Dosage: 13-21MAR08(5MG) 19-20MAR08(10MG) 20MAR-02APR08(15MG) 03APR-24SEP08(30MG) 25SEP-ONGOIN(40MG)
     Route: 048
     Dates: start: 20080925
  4. ATENOLOL [Concomitant]
     Indication: HYPERTENSION
     Route: 048
     Dates: start: 20080626
  5. NORVASC [Concomitant]
     Indication: HYPERTENSION
     Dosage: 2.5 MG/DAY: 21JUL - 24SEP08
     Route: 048
     Dates: start: 20080925
  6. KEPPRA [Concomitant]
     Indication: CONVULSION
     Route: 048
     Dates: start: 20080605
  7. PROVIGIL [Concomitant]
     Indication: FATIGUE
     Dosage: 31JUL-27AUG08(200MG) 28AUG-10SEP08(300MG) 11SEP08-ONGOING(200MG)
     Route: 048
     Dates: start: 20080911
  8. ZOFRAN [Concomitant]
     Indication: PROPHYLAXIS
     Dosage: 28FEB08-18SEP08(16MG) 02OCT08-ONGOIN(16MG)
     Route: 048
     Dates: start: 20080228

REACTIONS (2)
  - HYPERTHERMIA [None]
  - RENAL FAILURE ACUTE [None]
